FAERS Safety Report 10332141 (Version 2)
Quarter: 2014Q3

REPORT INFORMATION
  Report Type: Report from Study
  Country: KE (occurrence: KE)
  Receive Date: 20140722
  Receipt Date: 20140724
  Transmission Date: 20150326
  Serious: Yes (Death, Hospitalization, Other)
  Sender: FDA-Public Use
  Company Number: GB-BRISTOL-MYERS SQUIBB COMPANY-21212535

PATIENT
  Age: 46 Year
  Sex: Male
  Weight: 37.7 kg

DRUGS (13)
  1. COTRIMOXAZOLE [Suspect]
     Active Substance: SULFAMETHOXAZOLE\TRIMETHOPRIM
     Dates: start: 20140519, end: 20140709
  2. ETHAMBUTOL [Suspect]
     Active Substance: ETHAMBUTOL HYDROCHLORIDE
     Dates: start: 20140616, end: 20140709
  3. EFAVIRENZ [Suspect]
     Active Substance: EFAVIRENZ
     Indication: ANTIRETROVIRAL THERAPY
     Dates: start: 20140630, end: 20140709
  4. ALBENDAZOLE [Suspect]
     Active Substance: ALBENDAZOLE
     Indication: ANTIRETROVIRAL THERAPY
     Dates: start: 20140630, end: 20140630
  5. FLUCONAZOLE. [Suspect]
     Active Substance: FLUCONAZOLE
     Indication: ANTIRETROVIRAL THERAPY
     Dates: start: 20140606, end: 20140708
  6. RIFAMPICIN [Suspect]
     Active Substance: RIFAMPIN
     Dates: start: 20140616, end: 20140709
  7. AZITHROMYCIN [Suspect]
     Active Substance: AZITHROMYCIN ANHYDROUS
     Indication: ANTIRETROVIRAL THERAPY
     Dates: start: 20140608, end: 20140704
  8. ISONIAZID. [Suspect]
     Active Substance: ISONIAZID
     Indication: ANTIRETROVIRAL THERAPY
     Dates: start: 20140616, end: 20140709
  9. RALTEGRAVIR [Suspect]
     Active Substance: RALTEGRAVIR
     Indication: ANTIRETROVIRAL THERAPY
     Dates: start: 20140630, end: 20140709
  10. EMTRICITABINE [Suspect]
     Active Substance: EMTRICITABINE
     Indication: ANTIRETROVIRAL THERAPY
     Dates: start: 20140630, end: 20140709
  11. PYRIDOXINE [Suspect]
     Active Substance: PYRIDOXINE
     Dates: start: 20140616, end: 20140709
  12. TENOFOVIR [Suspect]
     Active Substance: TENOFOVIR
     Indication: ANTIRETROVIRAL THERAPY
     Dates: start: 20140630, end: 20140709
  13. PYRAZINAMIDE. [Suspect]
     Active Substance: PYRAZINAMIDE
     Dates: start: 20140616, end: 20140709

REACTIONS (7)
  - Meningitis [Not Recovered/Not Resolved]
  - Malnutrition [Not Recovered/Not Resolved]
  - Death [Fatal]
  - Jaundice [Not Recovered/Not Resolved]
  - Oesophageal candidiasis [Not Recovered/Not Resolved]
  - Diarrhoea [Not Recovered/Not Resolved]
  - Immune reconstitution inflammatory syndrome [Not Recovered/Not Resolved]

NARRATIVE: CASE EVENT DATE: 20140703
